FAERS Safety Report 22042310 (Version 1)
Quarter: 2023Q1

REPORT INFORMATION
  Report Type: Report from Study
  Country: IT (occurrence: IT)
  Receive Date: 20230227
  Receipt Date: 20230227
  Transmission Date: 20230417
  Serious: Yes (Hospitalization)
  Sender: FDA-Public Use
  Company Number: IT-CELLTRION INC.-2023IT004345

PATIENT

DRUGS (21)
  1. TRASTUZUMAB [Suspect]
     Active Substance: TRASTUZUMAB
     Indication: HER2 positive breast cancer
     Dosage: MOST RECENT DOSE PRIOR TO THE EVENT: 08/MAR/2018
     Route: 042
     Dates: start: 20171013, end: 20171013
  2. LETROZOLE [Suspect]
     Active Substance: LETROZOLE
     Indication: HER2 positive breast cancer
     Dosage: 2.5 MILLIGRAM, QD
     Route: 048
     Dates: start: 20180215, end: 20211013
  3. DOCETAXEL [Suspect]
     Active Substance: DOCETAXEL
     Indication: HER2 positive breast cancer
     Dosage: 147 MILLIGRAM, EVERY 3 WEEKS
     Route: 042
     Dates: start: 20171013, end: 20180125
  4. PERTUZUMAB [Suspect]
     Active Substance: PERTUZUMAB
     Indication: HER2 positive breast cancer
     Dosage: MOST RECENT DOSE PRIOR TO THE EVENT: 02/NOV/2017
     Route: 042
     Dates: start: 20171012, end: 20171012
  5. ADO-TRASTUZUMAB EMTANSINE [Suspect]
     Active Substance: ADO-TRASTUZUMAB EMTANSINE
     Indication: HER2 positive breast cancer
     Dosage: 300 MILLIGRAM, EVERY 3 WEEKS
     Route: 042
     Dates: start: 20211021
  6. PANTOPRAZOLE SODIUM [Concomitant]
     Active Substance: PANTOPRAZOLE SODIUM
     Indication: Disorientation
     Dosage: ONGOING = CHECKED
     Dates: start: 20191015
  7. KEPPRA [Concomitant]
     Active Substance: LEVETIRACETAM
     Dosage: ONGOING = CHECKED
     Dates: start: 20200704
  8. BLACK COHOSH [Concomitant]
     Active Substance: BLACK COHOSH
     Dosage: ONGOING = CHECKED
     Dates: start: 20181004
  9. RAMIPRIL [Concomitant]
     Active Substance: RAMIPRIL
     Indication: Ejection fraction decreased
     Dosage: ONGOING = CHECKED
     Dates: start: 20190919
  10. Decapeptyl [Concomitant]
     Dosage: ONGOING = CHECKED
     Dates: start: 20190411
  11. DEXAMETHASONE [Concomitant]
     Active Substance: DEXAMETHASONE
     Dosage: ONGOING = CHECKED
     Dates: start: 20200109
  12. ZOLEDRONIC ACID [Concomitant]
     Active Substance: ZOLEDRONIC ACID
     Dosage: ONGOING = CHECKED
     Dates: start: 20190228
  13. VALPROATE SODIUM [Concomitant]
     Active Substance: VALPROATE SODIUM
     Indication: Disorientation
     Dosage: ONGOING = CHECKED
     Dates: start: 20191015
  14. VALPROATE SODIUM [Concomitant]
     Active Substance: VALPROATE SODIUM
     Dosage: ONGOING = CHECKED
     Dates: start: 20200502
  15. Tavor [Concomitant]
     Dosage: ONGOING = CHECKED
     Dates: start: 20180419
  16. PIPERACILLIN SODIUM\TAZOBACTAM SODIUM [Concomitant]
     Active Substance: PIPERACILLIN SODIUM\TAZOBACTAM SODIUM
     Indication: Cholecystitis
     Dosage: ONGOING = CHECKED
     Dates: start: 20211102
  17. METRONIDAZOLE [Concomitant]
     Active Substance: METRONIDAZOLE
     Indication: Cholecystitis
     Dosage: ONGOING = CHECKED
     Dates: start: 20211102
  18. PANTOPRAZOLE SODIUM [Concomitant]
     Active Substance: PANTOPRAZOLE SODIUM
     Indication: Cholecystitis
     Dosage: ONGOING = CHECKED
     Dates: start: 20211102
  19. BISOPROLOL FUMARATE [Concomitant]
     Active Substance: BISOPROLOL FUMARATE
     Indication: Ejection fraction decreased
     Dosage: ONGOING = CHECKED
     Dates: start: 20190919
  20. TRIMETON [Concomitant]
     Active Substance: CHLORPHENIRAMINE MALEATE
     Dosage: ONGOING = CHECKED
     Dates: start: 20171012
  21. ACETAMINOPHEN [Concomitant]
     Active Substance: ACETAMINOPHEN
     Dosage: ONGOING = CHECKED
     Dates: start: 20171013

REACTIONS (2)
  - Jaundice [Recovered/Resolved]
  - Jaundice [Recovered/Resolved]

NARRATIVE: CASE EVENT DATE: 20210908
